FAERS Safety Report 5474013-5 (Version None)
Quarter: 2007Q4

REPORT INFORMATION
  Report Type: 
  Country: None (occurrence: None)
  Receive Date: 20071002
  Receipt Date: 20070921
  Transmission Date: 20080405
  Serious: Yes (Disabling)
  Sender: FDA-Public Use
  Company Number: PHEH2007US12323

PATIENT
  Age: 74 Year
  Sex: Female
  Weight: 68.934 kg

DRUGS (9)
  1. GLEEVEC [Suspect]
     Indication: CHRONIC MYELOID LEUKAEMIA
     Dosage: 400 MG, UNK
     Route: 048
     Dates: start: 20061120
  2. VYTORIN [Concomitant]
     Dosage: 10/20 MG, QD
     Route: 048
  3. GLIPIZIDE [Concomitant]
     Dosage: 5 MG, QD
     Route: 048
  4. METFORMIN HCL [Concomitant]
     Dosage: 500 MG, QD
     Route: 048
  5. COREG [Concomitant]
     Dosage: 6.25 MG, QD
     Route: 048
  6. PROCRIT [Concomitant]
     Indication: ANAEMIA
     Dosage: 40000 IU, QW
     Route: 058
     Dates: start: 20061012, end: 20070703
  7. PLAVIX [Concomitant]
     Dosage: 25 MG, QD
     Route: 048
  8. FUROSEMIDE [Concomitant]
     Dosage: 20 MG, QD
     Route: 048
  9. ECOTRIN [Concomitant]
     Dosage: 325 MG, QD
     Route: 048

REACTIONS (3)
  - ANAEMIA [None]
  - DYSPNOEA [None]
  - FATIGUE [None]
